FAERS Safety Report 20355354 (Version 1)
Quarter: 2022Q1

REPORT INFORMATION
  Report Type: Spontaneous
  Country: SK (occurrence: SK)
  Receive Date: 20220120
  Receipt Date: 20220120
  Transmission Date: 20220423
  Serious: Yes (Other)
  Sender: FDA-Public Use
  Company Number: SK-MYLANLABS-2022M1003543

PATIENT
  Sex: Male

DRUGS (2)
  1. DYMISTA [Suspect]
     Active Substance: AZELASTINE HYDROCHLORIDE\FLUTICASONE PROPIONATE
     Indication: Product used for unknown indication
     Dosage: (2X PER DAY FOR 7 DAYS (ONE WEEK), 8TH DAY ONLY ONCE PER DAY)
  2. BETAHISTINE [Concomitant]
     Active Substance: BETAHISTINE
     Dosage: 3X PER DAY FOR 3 MONTHS

REACTIONS (1)
  - Blood pressure increased [Unknown]
